FAERS Safety Report 10069383 (Version 1)
Quarter: 2014Q2

REPORT INFORMATION
  Report Type: Spontaneous
  Country: IT (occurrence: IT)
  Receive Date: 20140410
  Receipt Date: 20140410
  Transmission Date: 20141212
  Serious: Yes (Other)
  Sender: FDA-Public Use
  Company Number: IT-MERCK-1404ITA004373

PATIENT
  Sex: 0

DRUGS (6)
  1. PEGINTERFERON ALFA-2B [Suspect]
     Indication: HEPATIC CIRRHOSIS
     Dosage: 1.5 MICROGRAM PER KILOGRAM, QW
     Route: 058
  2. PEGINTERFERON ALFA-2B [Suspect]
     Indication: HEPATITIS C
  3. RIBAVIRIN [Suspect]
     Indication: HEPATIC CIRRHOSIS
     Dosage: 800?1000 MG/DAY FOR HCV GENOTYPE 2OR 3, 1000?1200 MG/DAY FOR HCV GENOTYPE 1 OR 4
     Route: 048
  4. RIBAVIRIN [Suspect]
     Indication: HEPATITIS C
  5. PEGINTERFERON ALFA-2A [Suspect]
     Indication: HEPATIC CIRRHOSIS
     Dosage: 180 MICROGRAM, QW
     Route: 058
  6. PEGINTERFERON ALFA-2A [Suspect]
     Indication: HEPATITIS C

REACTIONS (10)
  - Sepsis [Unknown]
  - Urinary tract infection [Unknown]
  - Pharyngitis [Unknown]
  - Dermatitis [Unknown]
  - Phlebitis [Unknown]
  - Peritonitis bacterial [Unknown]
  - Cholecystitis [Unknown]
  - Bronchopneumonia [Unknown]
  - Ear infection [Unknown]
  - Infection [Unknown]
